FAERS Safety Report 5914178-1 (Version None)
Quarter: 2008Q4

REPORT INFORMATION
  Report Type: 
  Country: None (occurrence: None)
  Receive Date: 20081009
  Receipt Date: 20080930
  Transmission Date: 20090506
  Serious: No
  Sender: FDA-Public Use
  Company Number: DE-ELI_LILLY_AND_COMPANY-DE200809006611

PATIENT
  Age: 6 Year
  Sex: Male

DRUGS (4)
  1. STRATTERA [Suspect]
     Indication: ATTENTION DEFICIT/HYPERACTIVITY DISORDER
     Dosage: 8 MG, DAILY (1/D)
     Route: 048
     Dates: start: 20080601, end: 20080101
  2. STRATTERA [Suspect]
     Dosage: 10 MG, DAILY (1/D)
     Route: 048
     Dates: start: 20080101, end: 20080101
  3. STRATTERA [Suspect]
     Dosage: 18 MG, DAILY (1/D)
     Route: 048
     Dates: start: 20080101, end: 20080101
  4. STRATTERA [Suspect]
     Dosage: 25 MG, DAILY (1/D)
     Route: 048
     Dates: start: 20080801

REACTIONS (5)
  - AGGRESSION [None]
  - ANGER [None]
  - ELECTROCARDIOGRAM QT PROLONGED [None]
  - IRRITABILITY [None]
  - MOOD SWINGS [None]
